FAERS Safety Report 14639434 (Version 1)
Quarter: 2018Q1

REPORT INFORMATION
  Report Type: Spontaneous
  Country: FR (occurrence: FR)
  Receive Date: 20180315
  Receipt Date: 20180315
  Transmission Date: 20180509
  Serious: Yes (Other)
  Sender: FDA-Public Use
  Company Number: FR-MERCK KGAA-2043781

PATIENT
  Age: 51 Year
  Sex: Female

DRUGS (1)
  1. NOVOTHYROX [Suspect]
     Active Substance: LEVOTHYROXINE SODIUM
     Indication: THYROID DISORDER

REACTIONS (15)
  - Fibromyalgia [None]
  - Abdominal pain upper [None]
  - Social avoidant behaviour [None]
  - Dizziness [None]
  - Fatigue [None]
  - Gait disturbance [None]
  - Headache [None]
  - Myalgia [None]
  - Depression [None]
  - Irritability [None]
  - Chest pain [None]
  - Sleep disorder [None]
  - Blood thyroid stimulating hormone increased [None]
  - Aggression [None]
  - Alopecia [None]

NARRATIVE: CASE EVENT DATE: 20171024
